FAERS Safety Report 22156611 (Version 1)
Quarter: 2023Q1

REPORT INFORMATION
  Report Type: Spontaneous
  Country: US (occurrence: None)
  Receive Date: 20230329
  Receipt Date: 20230329
  Transmission Date: 20230417
  Serious: Yes (Hospitalization)
  Sender: FDA-Public Use
  Company Number: None

PATIENT
  Age: 81 Year
  Sex: Female
  Weight: 81.65 kg

DRUGS (16)
  1. LENALIDOMIDE [Suspect]
     Active Substance: LENALIDOMIDE
     Dosage: OTHER FREQUENCY : 21DON7DOFF;?
     Route: 048
     Dates: start: 202303, end: 20230320
  2. AMLODIPINE [Concomitant]
  3. ARANSEP [Concomitant]
  4. ASPIRIN EC [Concomitant]
  5. ATORVASTATIN [Concomitant]
  6. CALCIUM [Concomitant]
  7. CARVEDILOL [Concomitant]
     Active Substance: CARVEDILOL
  8. GLIPIZIDE [Concomitant]
  9. GLUCOTROL XL [Concomitant]
  10. LOKELMA [Concomitant]
  11. LOSARTAN [Concomitant]
  12. METFORMIN [Concomitant]
  13. PROLIA [Concomitant]
  14. RETACRIT [Concomitant]
  15. VITAMIN B12 [Concomitant]
  16. VITAMIN D2 [Concomitant]

REACTIONS (2)
  - Hospitalisation [None]
  - Therapy interrupted [None]

NARRATIVE: CASE EVENT DATE: 20230320
